FAERS Safety Report 26010415 (Version 1)
Quarter: 2025Q4

REPORT INFORMATION
  Report Type: Spontaneous
  Country: SY (occurrence: SY)
  Receive Date: 20251107
  Receipt Date: 20251107
  Transmission Date: 20260117
  Serious: Yes (Life-Threatening, Hospitalization)
  Sender: BAUSCH AND LOMB
  Company Number: SY-MLMSERVICE-20251022-PI685625-00217-1

PATIENT
  Age: 22 Year
  Sex: Female

DRUGS (1)
  1. METFORMIN [Suspect]
     Active Substance: METFORMIN HYDROCHLORIDE
     Indication: Weight decreased
     Dosage: CONSUMING DOSES AS HIGH AS 3000 MG DAILY OVER THE COURSE OF A YEAR
     Route: 065
     Dates: start: 2021, end: 2022

REACTIONS (10)
  - Intentional product misuse [Unknown]
  - Drug abuse [Unknown]
  - Lactic acidosis [Recovered/Resolved]
  - Multiple organ dysfunction syndrome [Recovered/Resolved]
  - Acute kidney injury [Recovered/Resolved]
  - Pancreatitis acute [Recovered/Resolved]
  - Ischaemic hepatitis [Recovered/Resolved]
  - Gallbladder enlargement [Recovered/Resolved]
  - Ascites [Recovered/Resolved]
  - Respiratory failure [Recovered/Resolved]

NARRATIVE: CASE EVENT DATE: 20210101
